FAERS Safety Report 14335569 (Version 2)
Quarter: 2019Q1

REPORT INFORMATION
  Report Type: Spontaneous
  Country: ES (occurrence: ES)
  Receive Date: 20171229
  Receipt Date: 20190306
  Transmission Date: 20190417
  Serious: Yes (Hospitalization)
  Sender: FDA-Public Use
  Company Number: ES-TEVA-2017-ES-837860

PATIENT
  Age: 94 Year
  Sex: Female

DRUGS (5)
  1. LEVOFLOXACIN. [Suspect]
     Active Substance: LEVOFLOXACIN
     Indication: PNEUMONIA
     Dosage: LEVOFLOXACINE 500 MG EACH 24 H IV
     Dates: start: 20170904, end: 20170910
  2. CLINDAMICINA (616A) [Suspect]
     Active Substance: CLINDAMYCIN
     Indication: PNEUMONIA
     Dates: start: 20170904, end: 20170910
  3. PARACETAMOL [Concomitant]
     Active Substance: ACETAMINOPHEN
     Dosage: PARACETAMOL 1 GIV EACH 8 H IF NEEDED
     Dates: start: 20170904
  4. RANITIDINE. [Suspect]
     Active Substance: RANITIDINE
     Dosage: 100 MILLIGRAM DAILY;
     Route: 042
     Dates: start: 20170906, end: 20170910
  5. CLEXANE [Concomitant]
     Active Substance: ENOXAPARIN SODIUM
     Indication: THROMBOSIS PROPHYLAXIS
     Dosage: 40 MILLIGRAM DAILY;
     Route: 058
     Dates: start: 20170904

REACTIONS (1)
  - Acute generalised exanthematous pustulosis [Recovered/Resolved]

NARRATIVE: CASE EVENT DATE: 20170908
